FAERS Safety Report 5509263-2 (Version None)
Quarter: 2007Q4

REPORT INFORMATION
  Report Type: 
  Country: None (occurrence: None)
  Receive Date: 20071107
  Receipt Date: 20071022
  Transmission Date: 20080405
  Serious: No
  Sender: FDA-Public Use
  Company Number: US-BOEHRINGER INGELHEIM PHARMACEUTICALS, INC.-2007-BP-23156BP

PATIENT
  Age: 10 Year
  Sex: Female
  Weight: 27 kg

DRUGS (3)
  1. CATAPRES-TTS-1 [Suspect]
     Indication: TIC
     Route: 061
  2. STRATTERA [Concomitant]
     Indication: ATTENTION DEFICIT/HYPERACTIVITY DISORDER
  3. PREVACID [Concomitant]
     Indication: DYSPEPSIA

REACTIONS (2)
  - APPLICATION SITE IRRITATION [None]
  - APPLICATION SITE PRURITUS [None]
